FAERS Safety Report 22267176 (Version 2)
Quarter: 2023Q2

REPORT INFORMATION
  Report Type: Spontaneous
  Country: GB (occurrence: None)
  Receive Date: 20230428
  Receipt Date: 20230510
  Transmission Date: 20230721
  Serious: Yes (Other)
  Sender: FDA-Public Use
  Company Number: 2023A083390

PATIENT
  Age: 46 Year
  Sex: Female

DRUGS (185)
  1. ASTRAZENECA COVID-19 VACCINE [Suspect]
     Active Substance: AZD-1222
     Indication: COVID-19 immunisation
     Dosage: DOSE 1
     Dates: start: 20210130
  2. ASTRAZENECA COVID-19 VACCINE [Suspect]
     Active Substance: AZD-1222
     Indication: COVID-19 immunisation
     Dates: start: 20210204
  3. ASTRAZENECA COVID-19 VACCINE [Suspect]
     Active Substance: AZD-1222
     Indication: COVID-19 immunisation
     Dosage: DOSE 1
     Dates: start: 20210315
  4. ASTRAZENECA COVID-19 VACCINE [Suspect]
     Active Substance: AZD-1222
     Indication: COVID-19 immunisation
     Dosage: DOSE 2
     Dates: start: 20210521
  5. ASTRAZENECA COVID-19 VACCINE [Suspect]
     Active Substance: AZD-1222
     Dosage: DOSE 1
     Dates: start: 20210319
  6. ASTRAZENECA COVID-19 VACCINE [Suspect]
     Active Substance: AZD-1222
     Dosage: DOSE 2
     Dates: start: 20210713
  7. ASTRAZENECA COVID-19 VACCINE [Suspect]
     Active Substance: AZD-1222
     Indication: COVID-19 immunisation
     Dates: start: 20210508
  8. ASTRAZENECA COVID-19 VACCINE [Suspect]
     Active Substance: AZD-1222
     Dosage: DOSE 1
  9. ASTRAZENECA COVID-19 VACCINE [Suspect]
     Active Substance: AZD-1222
     Dosage: DOSE 1
     Dates: start: 20210215
  10. ASTRAZENECA COVID-19 VACCINE [Suspect]
     Active Substance: AZD-1222
     Indication: COVID-19 immunisation
     Dosage: DOSE 2;
     Dates: start: 20210423
  11. ASTRAZENECA COVID-19 VACCINE [Suspect]
     Active Substance: AZD-1222
     Indication: COVID-19 immunisation
     Dosage: DOSE 2
     Dates: start: 20210318
  12. ASTRAZENECA COVID-19 VACCINE [Suspect]
     Active Substance: AZD-1222
     Indication: COVID-19 immunisation
     Dosage: 0.5 ML
     Dates: start: 20210416
  13. ASTRAZENECA COVID-19 VACCINE [Suspect]
     Active Substance: AZD-1222
     Indication: COVID-19 immunisation
     Dosage: DOSE 1
     Dates: start: 2019
  14. BUDESONIDE [Suspect]
     Active Substance: BUDESONIDE
     Indication: Hypertension
     Dosage: 8 DOSAGE FORM, Q8WK
     Dates: start: 202207
  15. BUDESONIDE [Suspect]
     Active Substance: BUDESONIDE
     Indication: Colitis ulcerative
     Dosage: 8 DOSAGE FORM, Q8WK
     Dates: start: 202207
  16. BUDESONIDE [Suspect]
     Active Substance: BUDESONIDE
     Indication: Hypertension
     Dosage: 1 DOSAGE FORM, QD
     Dates: start: 202207
  17. BUDESONIDE [Suspect]
     Active Substance: BUDESONIDE
     Indication: Colitis ulcerative
     Dosage: 1 DOSAGE FORM, QD
     Dates: start: 202207
  18. BUDESONIDE [Suspect]
     Active Substance: BUDESONIDE
     Indication: Hypertension
     Dosage: 8 DOSAGE FORM, Q8WK
     Dates: start: 202207
  19. BUDESONIDE [Suspect]
     Active Substance: BUDESONIDE
     Indication: Colitis ulcerative
     Dosage: 8 DOSAGE FORM, Q8WK
     Dates: start: 202207
  20. OMEPRAZOLE [Suspect]
     Active Substance: OMEPRAZOLE
  21. FELODIPINE [Suspect]
     Active Substance: FELODIPINE
     Indication: Hypertension
     Dosage: 2.5ML TWICE A DAY; ;
     Dates: start: 20220403, end: 20230403
  22. CANDESARTAN [Suspect]
     Active Substance: CANDESARTAN
     Dosage: 2MG
     Dates: start: 20230412
  23. CANDESARTAN [Suspect]
     Active Substance: CANDESARTAN
     Dosage: 2MG
     Dates: start: 20170209
  24. DAPAGLIFLOZIN [Suspect]
     Active Substance: DAPAGLIFLOZIN
     Indication: Ill-defined disorder
     Dosage: TAKE ONE DAILY
     Dates: start: 20230316, end: 20230425
  25. ROSUVASTATIN [Suspect]
     Active Substance: ROSUVASTATIN
     Indication: Ill-defined disorder
     Dosage: NIGHT
  26. ROSUVASTATIN [Suspect]
     Active Substance: ROSUVASTATIN
     Indication: Blood cholesterol increased
     Dosage: NIGHT
  27. ROSUVASTATIN [Suspect]
     Active Substance: ROSUVASTATIN
     Indication: Ill-defined disorder
     Dates: start: 20230403
  28. ROSUVASTATIN [Suspect]
     Active Substance: ROSUVASTATIN
     Indication: Blood cholesterol increased
     Dates: start: 20230403
  29. ROSUVASTATIN [Suspect]
     Active Substance: ROSUVASTATIN
     Indication: Ill-defined disorder
     Dosage: 5MG ONCE AT NIGHT
     Dates: start: 20230303, end: 20230306
  30. ROSUVASTATIN [Suspect]
     Active Substance: ROSUVASTATIN
     Indication: Blood cholesterol increased
     Dosage: 5MG ONCE AT NIGHT
     Dates: start: 20230303, end: 20230306
  31. ESOMEPRAZOLE [Suspect]
     Active Substance: ESOMEPRAZOLE
     Indication: Gastritis
     Dosage: NIGHT
     Dates: start: 20230305
  32. DAPAGLIFLOZIN [Suspect]
     Active Substance: DAPAGLIFLOZIN
     Indication: Ill-defined disorder
     Dates: start: 20230425
  33. DAPAGLIFLOZIN [Suspect]
     Active Substance: DAPAGLIFLOZIN
     Indication: Cardiac failure chronic
     Dates: start: 20230425
  34. DAPAGLIFLOZIN [Suspect]
     Active Substance: DAPAGLIFLOZIN
     Indication: Ill-defined disorder
     Dosage: 10 ONCE DAILY MORNING
     Dates: start: 20230310, end: 20230331
  35. DAPAGLIFLOZIN [Suspect]
     Active Substance: DAPAGLIFLOZIN
     Indication: Cardiac failure chronic
     Dosage: 10 ONCE DAILY MORNING
     Dates: start: 20230310, end: 20230331
  36. ASACOL [Suspect]
     Active Substance: MESALAMINE
     Indication: Colitis ulcerative
     Dosage: 4.8 GRAM, QD
     Dates: start: 20161001
  37. ASACOL [Suspect]
     Active Substance: MESALAMINE
     Indication: Product used for unknown indication
     Dosage: 4.8 GRAM, QD
     Dates: start: 20161001
  38. ASACOL [Suspect]
     Active Substance: MESALAMINE
     Indication: Colitis ulcerative
     Dosage: 3 DOSAGE FORM, Q12H
     Dates: start: 20161001
  39. ASACOL [Suspect]
     Active Substance: MESALAMINE
     Indication: Product used for unknown indication
     Dosage: 3 DOSAGE FORM, Q12H
     Dates: start: 20161001
  40. ASACOL [Suspect]
     Active Substance: MESALAMINE
     Indication: Colitis ulcerative
     Dosage: 4.8 GRAM, QD
     Dates: start: 20161001
  41. ASACOL [Suspect]
     Active Substance: MESALAMINE
     Indication: Product used for unknown indication
     Dosage: 4.8 GRAM, QD
     Dates: start: 20161001
  42. ASACOL [Suspect]
     Active Substance: MESALAMINE
     Indication: Colitis ulcerative
     Dosage: 6 DOSAGE FORM, QD
     Dates: start: 20161001
  43. ASACOL [Suspect]
     Active Substance: MESALAMINE
     Indication: Product used for unknown indication
     Dosage: 6 DOSAGE FORM, QD
     Dates: start: 20161001
  44. ASACOL [Suspect]
     Active Substance: MESALAMINE
     Indication: Colitis ulcerative
     Dosage: 3 GRAM, QD
     Dates: start: 20161001
  45. ASACOL [Suspect]
     Active Substance: MESALAMINE
     Indication: Product used for unknown indication
     Dosage: 3 GRAM, QD
     Dates: start: 20161001
  46. CORTIFOAM [Suspect]
     Active Substance: HYDROCORTISONE ACETATE
     Indication: Product used for unknown indication
     Dosage: 1 DOSAGE FORM, QD
     Dates: start: 201707
  47. CORTIFOAM [Suspect]
     Active Substance: HYDROCORTISONE ACETATE
     Indication: Colitis ulcerative
     Dosage: 1 DOSAGE FORM, QD
     Dates: start: 201707
  48. CORTIFOAM [Suspect]
     Active Substance: HYDROCORTISONE ACETATE
     Indication: Product used for unknown indication
     Dosage: 1 DOSAGE FORM, QD
     Dates: start: 201707
  49. CORTIFOAM [Suspect]
     Active Substance: HYDROCORTISONE ACETATE
     Indication: Colitis ulcerative
     Dosage: 1 DOSAGE FORM, QD
     Dates: start: 201707
  50. CORTIFOAM [Suspect]
     Active Substance: HYDROCORTISONE ACETATE
     Indication: Product used for unknown indication
     Dosage: 8 DOSAGE FORM, Q8WK
     Dates: start: 201707
  51. CORTIFOAM [Suspect]
     Active Substance: HYDROCORTISONE ACETATE
     Indication: Colitis ulcerative
     Dosage: 8 DOSAGE FORM, Q8WK
     Dates: start: 201707
  52. ENTYVIO [Suspect]
     Active Substance: VEDOLIZUMAB
     Indication: Product used for unknown indication
     Dosage: UNK(DOSE FORM:200)
     Route: 042
     Dates: start: 2017, end: 2017
  53. ENTYVIO [Suspect]
     Active Substance: VEDOLIZUMAB
     Indication: Colitis ulcerative
     Dosage: UNK(DOSE FORM:200)
     Route: 042
     Dates: start: 2017, end: 2017
  54. HYDROCORTISONE [Suspect]
     Active Substance: HYDROCORTISONE
     Indication: Colitis ulcerative
     Dosage: 8 DOSAGE FORM, Q8WK
     Route: 048
     Dates: start: 201807
  55. HYDROCORTISONE [Suspect]
     Active Substance: HYDROCORTISONE
     Indication: Product used for unknown indication
     Dosage: 8 DOSAGE FORM, Q8WK
     Route: 048
     Dates: start: 201807
  56. HYDROCORTISONE [Suspect]
     Active Substance: HYDROCORTISONE
     Indication: Colitis ulcerative
     Dosage: 8 DOSAGE FORM, Q8WK
     Route: 048
     Dates: start: 201807
  57. HYDROCORTISONE [Suspect]
     Active Substance: HYDROCORTISONE
     Indication: Product used for unknown indication
     Dosage: 8 DOSAGE FORM, Q8WK
     Route: 048
     Dates: start: 201807
  58. HYDROCORTISONE [Suspect]
     Active Substance: HYDROCORTISONE
     Indication: Colitis ulcerative
     Dosage: 1 DOSAGE FORM, QD
     Route: 048
     Dates: start: 201807
  59. HYDROCORTISONE [Suspect]
     Active Substance: HYDROCORTISONE
     Indication: Product used for unknown indication
     Dosage: 1 DOSAGE FORM, QD
     Route: 048
     Dates: start: 201807
  60. MESALAMINE [Suspect]
     Active Substance: MESALAMINE
     Indication: Colitis ulcerative
     Dates: start: 20170101, end: 20170901
  61. MESALAMINE [Suspect]
     Active Substance: MESALAMINE
     Indication: Product used for unknown indication
     Dates: start: 20170101, end: 20170901
  62. MESALAMINE [Suspect]
     Active Substance: MESALAMINE
     Indication: Colitis ulcerative
     Dates: start: 20160101, end: 20161001
  63. MESALAMINE [Suspect]
     Active Substance: MESALAMINE
     Indication: Product used for unknown indication
     Dates: start: 20160101, end: 20161001
  64. MESALAMINE [Suspect]
     Active Substance: MESALAMINE
     Indication: Colitis ulcerative
     Dosage: 4.8 GRAM, QD
     Dates: start: 20161001
  65. MESALAMINE [Suspect]
     Active Substance: MESALAMINE
     Indication: Product used for unknown indication
     Dosage: 4.8 GRAM, QD
     Dates: start: 20161001
  66. MESALAMINE [Suspect]
     Active Substance: MESALAMINE
     Indication: Colitis ulcerative
     Dosage: 4.8 GRAM, QD
     Dates: start: 201610
  67. MESALAMINE [Suspect]
     Active Substance: MESALAMINE
     Indication: Product used for unknown indication
     Dosage: 4.8 GRAM, QD
     Dates: start: 201610
  68. MESALAMINE [Suspect]
     Active Substance: MESALAMINE
     Indication: Colitis ulcerative
     Dosage: 2.4 GRAM, QD
     Dates: start: 20161001
  69. MESALAMINE [Suspect]
     Active Substance: MESALAMINE
     Indication: Product used for unknown indication
     Dosage: 2.4 GRAM, QD
     Dates: start: 20161001
  70. MESALAMINE [Suspect]
     Active Substance: MESALAMINE
     Indication: Colitis ulcerative
     Dosage: 6 DOSAGE FORM, QD
     Dates: start: 20161001
  71. MESALAMINE [Suspect]
     Active Substance: MESALAMINE
     Indication: Product used for unknown indication
     Dosage: 6 DOSAGE FORM, QD
     Dates: start: 20161001
  72. MESALAMINE [Suspect]
     Active Substance: MESALAMINE
     Indication: Colitis ulcerative
     Dosage: 50 MILLIGRAM
     Dates: start: 20160101, end: 20161001
  73. MESALAMINE [Suspect]
     Active Substance: MESALAMINE
     Indication: Product used for unknown indication
     Dosage: 50 MILLIGRAM
     Dates: start: 20160101, end: 20161001
  74. MESALAMINE [Suspect]
     Active Substance: MESALAMINE
     Indication: Colitis ulcerative
     Dosage: 50 MILLIGRAM
     Dates: start: 20160101, end: 20161001
  75. MESALAMINE [Suspect]
     Active Substance: MESALAMINE
     Indication: Product used for unknown indication
     Dosage: 50 MILLIGRAM
     Dates: start: 20160101, end: 20161001
  76. MESALAMINE [Suspect]
     Active Substance: MESALAMINE
     Indication: Colitis ulcerative
     Dates: start: 2017, end: 201709
  77. MESALAMINE [Suspect]
     Active Substance: MESALAMINE
     Indication: Product used for unknown indication
     Dates: start: 2017, end: 201709
  78. MESALAMINE [Suspect]
     Active Substance: MESALAMINE
     Indication: Colitis ulcerative
     Dates: start: 20170101, end: 20170901
  79. MESALAMINE [Suspect]
     Active Substance: MESALAMINE
     Indication: Product used for unknown indication
     Dates: start: 20170101, end: 20170901
  80. MESALAMINE [Suspect]
     Active Substance: MESALAMINE
     Indication: Colitis ulcerative
     Dates: start: 201709, end: 201709
  81. MESALAMINE [Suspect]
     Active Substance: MESALAMINE
     Indication: Product used for unknown indication
     Dates: start: 201709, end: 201709
  82. MESALAMINE [Suspect]
     Active Substance: MESALAMINE
     Indication: Colitis ulcerative
     Dosage: 50 MILLIGRAM
     Dates: start: 20170101, end: 20170901
  83. MESALAMINE [Suspect]
     Active Substance: MESALAMINE
     Indication: Product used for unknown indication
     Dosage: 50 MILLIGRAM
     Dates: start: 20170101, end: 20170901
  84. MESALAMINE [Suspect]
     Active Substance: MESALAMINE
     Indication: Colitis ulcerative
     Dosage: 50 MILLIGRAM
     Dates: start: 201709, end: 201709
  85. MESALAMINE [Suspect]
     Active Substance: MESALAMINE
     Indication: Product used for unknown indication
     Dosage: 50 MILLIGRAM
     Dates: start: 201709, end: 201709
  86. MESALAMINE [Suspect]
     Active Substance: MESALAMINE
     Indication: Colitis ulcerative
     Route: 048
     Dates: start: 20160101, end: 20161001
  87. MESALAMINE [Suspect]
     Active Substance: MESALAMINE
     Indication: Product used for unknown indication
     Route: 048
     Dates: start: 20160101, end: 20161001
  88. MESALAMINE [Suspect]
     Active Substance: MESALAMINE
     Indication: Colitis ulcerative
     Dosage: UNK
     Dates: start: 20160101, end: 20161001
  89. MESALAMINE [Suspect]
     Active Substance: MESALAMINE
     Indication: Colitis ulcerative
     Dosage: UNK
     Dates: start: 20160101, end: 201610
  90. MESALAMINE [Suspect]
     Active Substance: MESALAMINE
     Indication: Colitis ulcerative
     Dosage: UNK
     Dates: start: 201601, end: 201610
  91. VEDOLIZUMAB [Suspect]
     Active Substance: VEDOLIZUMAB
     Indication: Colitis ulcerative
     Dosage: 1 DOSAGE FORM, QD
  92. VEDOLIZUMAB [Suspect]
     Active Substance: VEDOLIZUMAB
     Indication: Deep vein thrombosis
     Dosage: 1 DOSAGE FORM, QD
  93. VEDOLIZUMAB [Suspect]
     Active Substance: VEDOLIZUMAB
     Indication: Colitis ulcerative
     Dosage: 1 DOSAGE FORM, QD
     Route: 042
     Dates: start: 2017, end: 2017
  94. VEDOLIZUMAB [Suspect]
     Active Substance: VEDOLIZUMAB
     Indication: Deep vein thrombosis
     Dosage: 1 DOSAGE FORM, QD
     Route: 042
     Dates: start: 2017, end: 2017
  95. VEDOLIZUMAB [Suspect]
     Active Substance: VEDOLIZUMAB
     Indication: Colitis ulcerative
     Dosage: 1 DOSAGE FORM, QD
     Route: 042
     Dates: start: 2017, end: 2017
  96. VEDOLIZUMAB [Suspect]
     Active Substance: VEDOLIZUMAB
     Indication: Deep vein thrombosis
     Dosage: 1 DOSAGE FORM, QD
     Route: 042
     Dates: start: 2017, end: 2017
  97. WARFARIN [Suspect]
     Active Substance: WARFARIN
     Indication: Deep vein thrombosis
     Dates: start: 2009
  98. WARFARIN SODIUM [Suspect]
     Active Substance: WARFARIN SODIUM
     Indication: Deep vein thrombosis
     Route: 048
     Dates: start: 2009, end: 2009
  99. WARFARIN SODIUM [Suspect]
     Active Substance: WARFARIN SODIUM
     Indication: Colitis ulcerative
     Route: 048
     Dates: start: 2009, end: 2009
  100. WARFARIN SODIUM [Suspect]
     Active Substance: WARFARIN SODIUM
     Indication: Deep vein thrombosis
     Dosage: 1 DOSAGE FORM, QD
     Route: 048
     Dates: start: 201707
  101. WARFARIN SODIUM [Suspect]
     Active Substance: WARFARIN SODIUM
     Indication: Colitis ulcerative
     Dosage: 1 DOSAGE FORM, QD
     Route: 048
     Dates: start: 201707
  102. WARFARIN SODIUM [Suspect]
     Active Substance: WARFARIN SODIUM
     Indication: Deep vein thrombosis
     Dosage: 8 DOSAGE FORM, Q8WK
     Route: 048
     Dates: start: 201707
  103. WARFARIN SODIUM [Suspect]
     Active Substance: WARFARIN SODIUM
     Indication: Colitis ulcerative
     Dosage: 8 DOSAGE FORM, Q8WK
     Route: 048
     Dates: start: 201707
  104. WARFARIN SODIUM [Suspect]
     Active Substance: WARFARIN SODIUM
     Indication: Deep vein thrombosis
     Dosage: UNKNOWN
     Route: 048
     Dates: end: 2019
  105. WARFARIN SODIUM [Suspect]
     Active Substance: WARFARIN SODIUM
     Indication: Colitis ulcerative
     Dosage: UNKNOWN
     Route: 048
     Dates: end: 2019
  106. ADALIMUMAB [Suspect]
     Active Substance: ADALIMUMAB
     Indication: Crohn^s disease
     Route: 048
     Dates: start: 201707
  107. INFLIXIMAB [Suspect]
     Active Substance: INFLIXIMAB
     Indication: Crohn^s disease
     Dosage: 01-SEP-2017
     Route: 042
     Dates: start: 20170101, end: 20170901
  108. INFLIXIMAB [Suspect]
     Active Substance: INFLIXIMAB
     Indication: Product used for unknown indication
     Dosage: 01-SEP-2017
     Route: 042
     Dates: start: 20170101, end: 20170901
  109. INFLIXIMAB [Suspect]
     Active Substance: INFLIXIMAB
     Indication: Crohn^s disease
     Dosage: 5 MILLIGRAM/KILOGRAM, Q8WK
     Route: 042
     Dates: start: 20170101, end: 20170901
  110. INFLIXIMAB [Suspect]
     Active Substance: INFLIXIMAB
     Indication: Product used for unknown indication
     Dosage: 5 MILLIGRAM/KILOGRAM, Q8WK
     Route: 042
     Dates: start: 20170101, end: 20170901
  111. INFLIXIMAB [Suspect]
     Active Substance: INFLIXIMAB
     Indication: Crohn^s disease
     Dosage: UNK
     Route: 042
     Dates: start: 201709, end: 20170901
  112. INFLIXIMAB [Suspect]
     Active Substance: INFLIXIMAB
     Indication: Product used for unknown indication
     Dosage: UNK
     Route: 042
     Dates: start: 201709, end: 20170901
  113. INFLIXIMAB [Suspect]
     Active Substance: INFLIXIMAB
     Indication: Crohn^s disease
     Dosage: UNK
     Route: 042
     Dates: start: 201709, end: 20170901
  114. INFLIXIMAB [Suspect]
     Active Substance: INFLIXIMAB
     Indication: Product used for unknown indication
     Dosage: UNK
     Route: 042
     Dates: start: 201709, end: 20170901
  115. INFLIXIMAB [Suspect]
     Active Substance: INFLIXIMAB
     Indication: Crohn^s disease
     Dosage: 5 MILLIGRAM/KILOGRAM, Q8WK
     Route: 042
     Dates: start: 20171019
  116. INFLIXIMAB [Suspect]
     Active Substance: INFLIXIMAB
     Indication: Product used for unknown indication
     Dosage: 5 MILLIGRAM/KILOGRAM, Q8WK
     Route: 042
     Dates: start: 20171019
  117. INFLIXIMAB [Suspect]
     Active Substance: INFLIXIMAB
     Indication: Crohn^s disease
     Dosage: 5 MILLIGRAM/KILOGRAM, Q8WK
     Route: 042
     Dates: start: 20171019
  118. INFLIXIMAB [Suspect]
     Active Substance: INFLIXIMAB
     Indication: Product used for unknown indication
     Dosage: 5 MILLIGRAM/KILOGRAM, Q8WK
     Route: 042
     Dates: start: 20171019
  119. INFLIXIMAB [Suspect]
     Active Substance: INFLIXIMAB
     Indication: Crohn^s disease
     Dosage: UNK, Q8WK
     Route: 042
     Dates: start: 20170101, end: 20170901
  120. INFLIXIMAB [Suspect]
     Active Substance: INFLIXIMAB
     Indication: Product used for unknown indication
     Dosage: UNK, Q8WK
     Route: 042
     Dates: start: 20170101, end: 20170901
  121. PREDNISONE [Suspect]
     Active Substance: PREDNISONE
     Indication: Colitis ulcerative
     Dosage: 50 MILLIGRAM
     Dates: start: 2009, end: 2009
  122. PREDNISONE [Suspect]
     Active Substance: PREDNISONE
     Indication: Colitis ulcerative
     Dosage: 50 MILLIGRAM
     Dates: start: 2017
  123. SULFASALAZINE [Suspect]
     Active Substance: SULFASALAZINE
     Indication: Product used for unknown indication
     Dates: start: 2009, end: 2016
  124. SULFASALAZINE [Suspect]
     Active Substance: SULFASALAZINE
     Indication: Colitis ulcerative
     Dates: start: 2009, end: 2016
  125. SULFASALAZINE [Suspect]
     Active Substance: SULFASALAZINE
     Indication: Product used for unknown indication
     Dates: start: 20160101, end: 20160101
  126. SULFASALAZINE [Suspect]
     Active Substance: SULFASALAZINE
     Indication: Colitis ulcerative
     Dates: start: 20160101, end: 20160101
  127. SULFASALAZINE [Suspect]
     Active Substance: SULFASALAZINE
     Indication: Product used for unknown indication
     Dosage: UNK UNK, UNK
     Dates: start: 20090101, end: 20160101
  128. SULFASALAZINE [Suspect]
     Active Substance: SULFASALAZINE
     Indication: Colitis ulcerative
     Dosage: UNK UNK, UNK
     Dates: start: 20090101, end: 20160101
  129. SULFASALAZINE [Suspect]
     Active Substance: SULFASALAZINE
     Indication: Product used for unknown indication
     Dosage: UNK UNK, UNK
     Dates: start: 201709, end: 201709
  130. SULFASALAZINE [Suspect]
     Active Substance: SULFASALAZINE
     Indication: Colitis ulcerative
     Dosage: UNK UNK, UNK
     Dates: start: 201709, end: 201709
  131. ALBENDAZOLE [Suspect]
     Active Substance: ALBENDAZOLE
     Indication: Colitis ulcerative
     Dates: start: 2017, end: 2017
  132. EPINEPHRINE [Suspect]
     Active Substance: EPINEPHRINE
  133. ASPIRIN [Suspect]
     Active Substance: ASPIRIN
     Dosage: MORNING
  134. MEBEVERINE [Suspect]
     Active Substance: MEBEVERINE
  135. ESCITALOPRAM [Suspect]
     Active Substance: ESCITALOPRAM OXALATE
  136. FUROSEMIDE [Suspect]
     Active Substance: FUROSEMIDE
     Dosage: MORNING
  137. GABAPENTIN [Suspect]
     Active Substance: GABAPENTIN
     Dosage: MORNING
  138. LEVOTHYROXINE [Suspect]
     Active Substance: LEVOTHYROXINE
     Dosage: MORNING
  139. CHOLECALCIFEROL [Suspect]
     Active Substance: CHOLECALCIFEROL
  140. METFORMIN [Suspect]
     Active Substance: METFORMIN HYDROCHLORIDE
  141. OXYCODONE [Suspect]
     Active Substance: OXYCODONE
  142. ACETAMINOPHEN [Suspect]
     Active Substance: ACETAMINOPHEN
  143. COMIRNATY [Suspect]
     Active Substance: TOZINAMERAN
     Dosage: DOSE 3
     Dates: start: 20220322
  144. CALCIUM CARBONATE\CHOLECALCIFEROL [Concomitant]
     Active Substance: CALCIUM CARBONATE\CHOLECALCIFEROL
  145. GAVISCON [Concomitant]
     Active Substance: ALUMINUM HYDROXIDE\MAGNESIUM CARBONATE
  146. ASPIRIN [Concomitant]
     Active Substance: ASPIRIN
     Indication: Ill-defined disorder
     Dosage: ONE TO BE TAKEN IN THE MORNING
     Dates: start: 20230117
  147. BISOPROLOL [Concomitant]
     Active Substance: BISOPROLOL
     Indication: Ill-defined disorder
     Dosage: TAKE ONE DAILY
     Dates: start: 20230127
  148. CITALOPRAM [Concomitant]
     Active Substance: CITALOPRAM HYDROBROMIDE
     Indication: Ill-defined disorder
     Dosage: ONE TO BE TAKEN DAILY
     Dates: start: 20230117
  149. LANSOPRAZOLE [Concomitant]
     Active Substance: LANSOPRAZOLE
     Indication: Ill-defined disorder
     Dosage: ONE TABLET IN THE MORNING TO PROTECT THE STOMAC...
     Dates: start: 20230117
  150. LYRICA [Concomitant]
     Active Substance: PREGABALIN
     Indication: Ill-defined disorder
     Dosage: PREGABALIN ONE TO BE TAKEN TWICE A DAY
     Dates: start: 20230117
  151. ACETAMINOPHEN [Concomitant]
     Active Substance: ACETAMINOPHEN
     Indication: Ill-defined disorder
     Dosage: TAKE ONE OR TWO TABLETS EVERY 4 TO 6 HOURS WHEN...
     Dates: start: 20230117
  152. ACETAMINOPHEN [Concomitant]
     Active Substance: ACETAMINOPHEN
     Indication: Ill-defined disorder
     Dosage: TAKE 2 4 TIMES/DAY
     Dates: start: 20230412
  153. RAMIPRIL [Concomitant]
     Active Substance: RAMIPRIL
     Indication: Ill-defined disorder
     Dosage: TAKE ONE DAILY
     Dates: start: 20230117
  154. RAMIPRIL [Concomitant]
     Active Substance: RAMIPRIL
     Indication: Ill-defined disorder
     Dosage: TAKE ONE DAILY
     Dates: start: 20221220
  155. RAMIPRIL [Concomitant]
     Active Substance: RAMIPRIL
     Indication: Ill-defined disorder
     Dosage: TAKE ONE DAILY
     Dates: start: 20221220
  156. BISOPROLOL [Concomitant]
     Active Substance: BISOPROLOL
     Indication: Dyscalculia
     Dosage: TAKE ONE DAILY
     Dates: start: 20230117
  157. AMLODIPINE [Concomitant]
     Active Substance: AMLODIPINE BESYLATE
     Indication: Ill-defined disorder
     Dosage: TAKE ONE DAILY
     Dates: start: 20220805, end: 20230220
  158. AMLODIPINE [Concomitant]
     Active Substance: AMLODIPINE BESYLATE
     Indication: Ill-defined disorder
     Dosage: TAKE ONE DAILY
     Dates: start: 20220805, end: 20230220
  159. ATORVASTATIN [Concomitant]
     Active Substance: ATORVASTATIN
     Indication: Ill-defined disorder
     Dosage: ONE TO BE TAKEN AT NIGHT
     Dates: start: 20220628
  160. DORZOLAMIDE [Concomitant]
     Active Substance: DORZOLAMIDE
     Indication: Ill-defined disorder
     Dosage: ONE DROP TWICE DAILY IN THE RIGHT EYE ONLY
     Dates: start: 20220628
  161. DORZOLAMIDE [Concomitant]
     Active Substance: DORZOLAMIDE
     Indication: Ill-defined disorder
     Dosage: ONE DROP TWICE DAILY IN THE RIGHT EYE ONLY
     Dates: start: 20220628
  162. DORZOLAMIDE [Concomitant]
     Active Substance: DORZOLAMIDE
     Indication: Ill-defined disorder
     Dosage: USE ONE DROP IN BOTH EYES TWICE A DAY AS DIRECT...;
     Dates: start: 20221220
  163. FESOTERODINE FUMARATE [Concomitant]
     Active Substance: FESOTERODINE FUMARATE
     Indication: Ill-defined disorder
     Dosage: TAKE TWO DAILY
     Dates: start: 20220628
  164. FOLIC ACID [Concomitant]
     Active Substance: FOLIC ACID
     Indication: Ill-defined disorder
     Dosage: TAKE ONE DAILY FOR 4 MONTHS ONLY
     Dates: start: 20230220
  165. LATANOPROST [Concomitant]
     Active Substance: LATANOPROST
     Indication: Ill-defined disorder
     Dosage: ONE DROP ONCE DAILY IN BOTH EYES
     Dates: start: 20230412
  166. POLYETHYLENE GLYCOL 3350\POTASSIUM CHLORIDE\SODIUM BICARBONATE\SODIUM [Concomitant]
     Active Substance: POLYETHYLENE GLYCOL 3350\POTASSIUM CHLORIDE\SODIUM BICARBONATE\SODIUM CHLORIDE
     Indication: Ill-defined disorder
     Dosage: TAKE ONE UP TO TWICE A DAY AS REQUIRED
     Dates: start: 20230412
  167. LATANOPROST [Concomitant]
     Active Substance: LATANOPROST
     Indication: Ill-defined disorder
     Dosage: APPLY ONE DROP ONCE DAILY TO BOTH EYES
     Dates: start: 20220628, end: 20230413
  168. LATANOPROST [Concomitant]
     Active Substance: LATANOPROST
     Indication: Ill-defined disorder
     Dosage: ONE DROP ONCE DAILY AT NIGHT
     Dates: start: 20221220
  169. MOVICOL [Concomitant]
     Active Substance: POLYETHYLENE GLYCOL 3350\POTASSIUM CHLORIDE\SODIUM BICARBONATE\SODIUM CHLORIDE
     Indication: Ill-defined disorder
     Dosage: TWO SACHET BD
     Dates: start: 20220628, end: 20230320
  170. NITROFURANTOIN [Concomitant]
     Active Substance: NITROFURANTOIN
     Indication: Ill-defined disorder
     Dosage: TAKE ONE CAPSULE, TWICE DAILY
     Dates: start: 20230413
  171. RIVAROXABAN [Concomitant]
     Active Substance: RIVAROXABAN
     Dosage: TAKE ONE DAILY
     Dates: start: 20220628
  172. RIVAROXABAN [Concomitant]
     Active Substance: RIVAROXABAN
     Indication: Ill-defined disorder
     Dates: start: 20220628
  173. UNSPECIFIED INGREDIENT [Concomitant]
     Active Substance: UNSPECIFIED INGREDIENT
     Indication: Ill-defined disorder
     Dosage: USE AS DIRECTED BY OPTHALMOLOGY
     Dates: start: 20220628, end: 20230413
  174. CLOBETASONE BUTYRATE [Concomitant]
     Active Substance: CLOBETASONE BUTYRATE
     Indication: Ill-defined disorder
     Dosage: USE TWICE DAILY TO FLARES OF ECZEMA FOR UP TO 7...;
     Dates: start: 20230308
  175. PRAVASTATIN [Concomitant]
     Active Substance: PRAVASTATIN
     Indication: Ill-defined disorder
     Dosage: TAKE ONE AT NIGHT;
     Dates: start: 20221220
  176. OMEPRAZOLE [Concomitant]
     Active Substance: OMEPRAZOLE
     Indication: Ill-defined disorder
     Dates: start: 20221220
  177. ROSUVASTATIN [Concomitant]
     Active Substance: ROSUVASTATIN
     Indication: Ill-defined disorder
     Dosage: TAKE ONE TABLET EACH DAY TO HELP LOWER CHOLESTEROL
     Dates: start: 20221230, end: 20230403
  178. EMPAGLIFLOZIN [Concomitant]
     Active Substance: EMPAGLIFLOZIN
     Indication: Ill-defined disorder
     Dosage: TAKE ONE TABLET ONCE A DAY;
     Dates: start: 20221220
  179. BETNOVATE [Concomitant]
     Active Substance: BETAMETHASONE
     Indication: Ill-defined disorder
     Dosage: APPLY TO THE AFFECTED AREA(S) ONCE OR TWICE A DAY; ;
     Dates: start: 20221220
  180. PARAFFIN [Concomitant]
     Active Substance: PARAFFIN
     Indication: Ill-defined disorder
     Dosage: APPLY THREE TIMES A DAY AS REQUIRED TO DRY SKIN
     Dates: start: 20230412
  181. HUMIRA [Concomitant]
     Active Substance: ADALIMUMAB
     Indication: Crohn^s disease
     Dosage: 8 DOSAGE FORM
     Route: 048
     Dates: start: 201707
  182. HUMIRA [Concomitant]
     Active Substance: ADALIMUMAB
     Indication: Deep vein thrombosis
     Dosage: 8 DOSAGE FORM
     Route: 048
     Dates: start: 201707
  183. METHOTREXATE [Concomitant]
     Active Substance: METHOTREXATE
     Indication: Colitis ulcerative
     Dates: start: 201709, end: 201709
  184. METHOTREXATE [Concomitant]
     Active Substance: METHOTREXATE
     Indication: Colitis ulcerative
     Dates: start: 20090101, end: 20160101
  185. XELJANZ [Concomitant]
     Active Substance: TOFACITINIB CITRATE
     Indication: Colitis ulcerative
     Dosage: 5 MILLIGRAM, BID

REACTIONS (57)
  - Gingival pain [Recovered/Resolved with Sequelae]
  - Rhinitis [Not Recovered/Not Resolved]
  - Catarrh [Not Recovered/Not Resolved]
  - Frequent bowel movements [Unknown]
  - Deep vein thrombosis [Unknown]
  - Impaired quality of life [Unknown]
  - Condition aggravated [Unknown]
  - Inappropriate schedule of product administration [Not Recovered/Not Resolved]
  - Weight decreased [Unknown]
  - Rectal haemorrhage [Unknown]
  - Stress [Not Recovered/Not Resolved]
  - Colitis ulcerative [Unknown]
  - Product use in unapproved indication [Unknown]
  - Drug ineffective [Unknown]
  - Intentional product use issue [Not Recovered/Not Resolved]
  - Impaired work ability [Unknown]
  - Off label use [Unknown]
  - Loss of personal independence in daily activities [Unknown]
  - Loss of personal independence in daily activities [Unknown]
  - Steroid dependence [Unknown]
  - Bronchiectasis [Unknown]
  - Haematochezia [Unknown]
  - Colitis ulcerative [Unknown]
  - Accidental overdose [Recovered/Resolved]
  - Confusional state [Unknown]
  - Somnolence [Unknown]
  - Tubulointerstitial nephritis [Recovered/Resolved with Sequelae]
  - Adverse drug reaction [Unknown]
  - COVID-19 [Recovered/Resolved]
  - Burns second degree [Recovered/Resolved]
  - Arthritis [Not Recovered/Not Resolved]
  - Pulmonary embolism [Recovered/Resolved with Sequelae]
  - Tinnitus [Not Recovered/Not Resolved]
  - Parosmia [Not Recovered/Not Resolved]
  - Rash [Unknown]
  - Eczema [Recovered/Resolved]
  - Swollen tongue [Recovered/Resolved]
  - Nightmare [Recovered/Resolved]
  - Systemic lupus erythematosus [Recovered/Resolved]
  - Hypopnoea [Recovered/Resolved with Sequelae]
  - Migraine [Recovering/Resolving]
  - Rash [Not Recovered/Not Resolved]
  - Vertigo [Recovering/Resolving]
  - Tinnitus [Not Recovered/Not Resolved]
  - Cardiac murmur [Recovered/Resolved with Sequelae]
  - Fatigue [Not Recovered/Not Resolved]
  - Pain in extremity [Recovered/Resolved]
  - Abdominal discomfort [Not Recovered/Not Resolved]
  - Cerebrovascular accident [Recovered/Resolved with Sequelae]
  - Depression [Recovered/Resolved]
  - Dysgeusia [Not Recovered/Not Resolved]
  - Fatigue [Unknown]
  - Pyrexia [Recovered/Resolved]
  - Pain [Recovered/Resolved]
  - Headache [Recovered/Resolved]
  - Palpitations [Not Recovered/Not Resolved]
  - Medication error [Unknown]

NARRATIVE: CASE EVENT DATE: 20080101
